FAERS Safety Report 4949856-4 (Version None)
Quarter: 2006Q1

REPORT INFORMATION
  Report Type: 
  Country: None (occurrence: None)
  Receive Date: 20060127
  Receipt Date: 20050412
  Transmission Date: 20060701
  Serious: Yes (Hospitalization)
  Sender: FDA-Public Use
  Company Number: 05-04-0612

PATIENT
  Age: 83 Year
  Sex: Female

DRUGS (1)
  1. CLOZAPINE [Suspect]
     Indication: PSYCHOTIC DISORDER
     Dosage: 50 MG QD, ORAL
     Route: 048
     Dates: start: 20030801

REACTIONS (2)
  - DYSPNOEA [None]
  - RESPIRATORY TRACT CONGESTION [None]
